FAERS Safety Report 9322844 (Version 1)
Quarter: 2013Q2

REPORT INFORMATION
  Report Type: Spontaneous
  Country: GR (occurrence: GR)
  Receive Date: 20130602
  Receipt Date: 20130602
  Transmission Date: 20140414
  Serious: Yes (Hospitalization, Other)
  Sender: FDA-Public Use
  Company Number: PHHY2013GR053591

PATIENT
  Age: 57 Year
  Sex: Male

DRUGS (3)
  1. VOLTAREN ACTIGO [Suspect]
     Indication: ARTHRALGIA
     Dosage: 50 MG, 2 TO 3 TIME PER DAY FOR 3 DAYS
     Route: 048
  2. LIPITOR [Concomitant]
  3. EXFORGE [Concomitant]

REACTIONS (8)
  - Haematocrit decreased [Recovered/Resolved]
  - Helicobacter infection [Recovered/Resolved]
  - Syncope [Recovered/Resolved]
  - Dizziness [Recovered/Resolved]
  - Gastric haemorrhage [Recovered/Resolved]
  - Haematemesis [Recovered/Resolved]
  - Abdominal distension [Recovered/Resolved]
  - Fall [Unknown]
